FAERS Safety Report 13544807 (Version 1)
Quarter: 2017Q2

REPORT INFORMATION
  Report Type: Spontaneous
  Country: US (occurrence: US)
  Receive Date: 20170515
  Receipt Date: 20170515
  Transmission Date: 20170830
  Serious: Yes (Hospitalization, Other)
  Sender: FDA-Public Use
  Company Number: US-GLAXOSMITHKLINE-US2017GSK070330

PATIENT
  Age: 26 Year
  Sex: Female

DRUGS (1)
  1. LAMOTRIGINE. [Suspect]
     Active Substance: LAMOTRIGINE
     Indication: BIPOLAR DISORDER
     Dosage: 150 MG, UNK

REACTIONS (8)
  - Skin exfoliation [Unknown]
  - Blister [Unknown]
  - Rash [Unknown]
  - Pain [Unknown]
  - Visual impairment [Unknown]
  - Wound [Unknown]
  - Stevens-Johnson syndrome [Unknown]
  - Influenza [Unknown]
